FAERS Safety Report 9341584 (Version 2)
Quarter: 2013Q2

REPORT INFORMATION
  Report Type: Report from Study
  Country: CA (occurrence: CA)
  Receive Date: 20130611
  Receipt Date: 20130613
  Transmission Date: 20140414
  Serious: Yes (Other)
  Sender: FDA-Public Use
  Company Number: PHHY2013CA058757

PATIENT
  Sex: Male

DRUGS (2)
  1. CLOZARIL [Suspect]
     Dosage: 300 MG, UNK
     Dates: start: 20120612
  2. CLOZARIL [Suspect]
     Dosage: 300 MG, UNK

REACTIONS (1)
  - Mania [Unknown]
